FAERS Safety Report 4343576-5 (Version None)
Quarter: 2004Q2

REPORT INFORMATION
  Report Type: 
  Country: None (occurrence: None)
  Receive Date: 20040419
  Receipt Date: 20040406
  Transmission Date: 20050107
  Serious: Yes (Hospitalization)
  Sender: FDA-Public Use
  Company Number: US-JNJFOC-20040401349

PATIENT
  Age: 64 Year
  Sex: Male

DRUGS (1)
  1. DURAGESIC [Suspect]
     Indication: PAIN
     Dosage: 175 UG/HR, 1 IN 72 HOUR, TRANSDERMAL
     Route: 062
     Dates: start: 20040101

REACTIONS (2)
  - DYSPNOEA [None]
  - OXYGEN SATURATION DECREASED [None]
